FAERS Safety Report 8995920 (Version 1)
Quarter: 2013Q1

REPORT INFORMATION
  Report Type: Spontaneous
  Country: US (occurrence: US)
  Receive Date: 20130103
  Receipt Date: 20130103
  Transmission Date: 20140127
  Serious: Yes (Other)
  Sender: FDA-Public Use
  Company Number: US-BAYER-2012-136428

PATIENT
  Age: 51 Year
  Sex: Female
  Weight: 61.22 kg

DRUGS (2)
  1. ALKA-SELTZER PLUS DAY,ALKA-SELTZER PLUS NIGHT [Suspect]
     Indication: INFLUENZA
     Dosage: 1 DF, ONCE
     Route: 048
     Dates: start: 20121224, end: 20121224
  2. TOPOMAX [Concomitant]

REACTIONS (2)
  - Aphagia [Recovered/Resolved]
  - Retching [Recovered/Resolved]
